FAERS Safety Report 23904144 (Version 1)
Quarter: 2024Q2

REPORT INFORMATION
  Report Type: Spontaneous
  Country: ES (occurrence: ES)
  Receive Date: 20240527
  Receipt Date: 20240527
  Transmission Date: 20240716
  Serious: Yes (Other)
  Sender: FDA-Public Use
  Company Number: None

PATIENT
  Age: 48 Year
  Sex: Male

DRUGS (1)
  1. TAMSULOSIN [Suspect]
     Active Substance: TAMSULOSIN
     Indication: Product used for unknown indication
     Dosage: 1, 30 CAPSULES MODIFIED RELEASE
     Route: 048
     Dates: start: 20240423, end: 20240503

REACTIONS (1)
  - Retrograde ejaculation [Recovered/Resolved]

NARRATIVE: CASE EVENT DATE: 20240424
